FAERS Safety Report 8256235-3 (Version None)
Quarter: 2012Q2

REPORT INFORMATION
  Report Type: 
  Country: None (occurrence: None)
  Receive Date: 20120403
  Receipt Date: 20120328
  Transmission Date: 20120825
  Serious: Yes (Other)
  Sender: FDA-Public Use
  Company Number: GB-ASTRAZENECA-2012SE20809

PATIENT
  Sex: Female

DRUGS (2)
  1. BECLOMETHASONE DIPROPIONATE [Concomitant]
  2. SYMBICORT [Suspect]
     Indication: ASTHMA
     Dosage: 100/6 MCG; 1 DF, TWO TIMES A DAY
     Route: 055
     Dates: start: 20110801

REACTIONS (1)
  - BLOOD CORTISOL DECREASED [None]
